FAERS Safety Report 5925739-8 (Version None)
Quarter: 2008Q3

REPORT INFORMATION
  Report Type: 
  Country: None (occurrence: None)
  Receive Date: 20080919
  Receipt Date: 20080811
  Transmission Date: 20090109
  Serious: Yes (Other)
  Sender: FDA-Public Use
  Company Number: US-WYE-H05564308

PATIENT
  Age: 62 Year
  Sex: Female
  Weight: 109.87 kg

DRUGS (9)
  1. PRISTIQ [Suspect]
     Indication: DEPRESSION
     Dosage: 50 MG 1X PER 1 DAY, ORAL
     Route: 048
     Dates: start: 20080601, end: 20080808
  2. ESTRATEST [Concomitant]
  3. PREDNISONE [Concomitant]
  4. PRILOSEC [Concomitant]
  5. TOPAMAX [Concomitant]
  6. SINEQUAN [Concomitant]
  7. INDOCIN [Concomitant]
  8. PROZAC [Concomitant]
  9. TOPROL-XL [Concomitant]

REACTIONS (4)
  - DRY MOUTH [None]
  - MOUTH ULCERATION [None]
  - PARAESTHESIA ORAL [None]
  - TREMOR [None]
